FAERS Safety Report 5846045-6 (Version None)
Quarter: 2008Q3

REPORT INFORMATION
  Report Type: 
  Country: None (occurrence: None)
  Receive Date: 20080814
  Receipt Date: 20080421
  Transmission Date: 20090109
  Serious: Yes (Other)
  Sender: FDA-Public Use
  Company Number: DE-WYE-H00966207

PATIENT
  Sex: Male

DRUGS (4)
  1. PANTOZOL [Suspect]
     Indication: GASTRITIS
     Dosage: 40 MG EVERY 1 TOT
     Route: 048
     Dates: start: 20070901, end: 20070901
  2. PANTOZOL [Suspect]
     Indication: DUODENITIS
  3. PANZYTRAT [Concomitant]
     Indication: PANCREATITIS ACUTE
     Dosage: ^DF^
     Route: 048
  4. GLYBURIDE [Concomitant]
     Indication: TYPE 2 DIABETES MELLITUS
     Dosage: ^DF^
     Route: 048

REACTIONS (2)
  - GAIT DISTURBANCE [None]
  - HYPERSOMNIA [None]
